FAERS Safety Report 5200050-1 (Version None)
Quarter: 2007Q1

REPORT INFORMATION
  Report Type: 
  Country: None (occurrence: None)
  Receive Date: 20070105
  Receipt Date: 20061226
  Transmission Date: 20070707
  Serious: Yes (Death, Other)
  Sender: FDA-Public Use
  Company Number: JP-ELI_LILLY_AND_COMPANY-JP200611003014

PATIENT
  Age: 71 Year
  Sex: Male
  Weight: 57.7 kg

DRUGS (7)
  1. GEMCITABINE HCL [Suspect]
     Indication: LUNG CARCINOMA CELL TYPE UNSPECIFIED STAGE III
     Dosage: 1600 MG, OTHER
     Route: 042
     Dates: start: 20061101, end: 20061108
  2. CISPLATIN [Concomitant]
     Indication: LUNG NEOPLASM MALIGNANT
     Dosage: 130 MG, OTHER
     Route: 042
     Dates: start: 20061101, end: 20061101
  3. BETAMETHASONE SODIUM PHOSPHATE [Concomitant]
     Indication: PROPHYLAXIS
     Dosage: 4 MG, UNKNOWN
     Route: 042
     Dates: start: 20061101
  4. PRIMPERAN TAB [Concomitant]
     Indication: PROPHYLAXIS
     Dosage: 40 MG, UNK
     Route: 042
     Dates: start: 20061101
  5. PRIMPERAN TAB [Concomitant]
     Dosage: 20 MG, UNK
     Dates: start: 20061101
  6. KYTRIL [Concomitant]
     Dosage: 3 MG, UNK
     Route: 042
     Dates: start: 20061101
  7. LASIX [Concomitant]
     Dosage: 10 MG, UNK
     Route: 042

REACTIONS (5)
  - BONE MARROW FAILURE [None]
  - DISSEMINATED INTRAVASCULAR COAGULATION [None]
  - INTERSTITIAL LUNG DISEASE [None]
  - LUNG DISORDER [None]
  - PNEUMONITIS [None]
